FAERS Safety Report 18315624 (Version 2)
Quarter: 2021Q1

REPORT INFORMATION
  Report Type: Spontaneous
  Country: AE (occurrence: AE)
  Receive Date: 20200926
  Receipt Date: 20210122
  Transmission Date: 20210419
  Serious: Yes (Other)
  Sender: FDA-Public Use
  Company Number: NVSC2020AE257790

PATIENT
  Sex: Male

DRUGS (1)
  1. BEOVU [Suspect]
     Active Substance: BROLUCIZUMAB-DBLL
     Indication: NEOVASCULAR AGE-RELATED MACULAR DEGENERATION
     Dosage: 6 MG, QMO (3LOADING DOSES MONTHLY AND THEN FOR EVERY 3 MONTHS)
     Route: 047
     Dates: start: 20200822

REACTIONS (4)
  - Retinal ischaemia [Unknown]
  - Vitreous floaters [Unknown]
  - Retinal vein occlusion [Not Recovered/Not Resolved]
  - Retinal vasculitis [Unknown]
